FAERS Safety Report 21372704 (Version 1)
Quarter: 2022Q3

REPORT INFORMATION
  Report Type: Spontaneous
  Country: US (occurrence: US)
  Receive Date: 20220924
  Receipt Date: 20220924
  Transmission Date: 20221027
  Serious: No
  Sender: FDA-Public Use
  Company Number: US-UNITED THERAPEUTICS-UNT-2022-021683

PATIENT
  Sex: Male
  Weight: 68.481 kg

DRUGS (4)
  1. TYVASO [Suspect]
     Active Substance: TREPROSTINIL
     Indication: Pulmonary arterial hypertension
     Dosage: UNK
     Dates: start: 20210712
  2. TYVASO [Suspect]
     Active Substance: TREPROSTINIL
     Dosage: 42 ?G, QID
     Dates: start: 202209
  3. PREDNISONE [Suspect]
     Active Substance: PREDNISONE
     Indication: Product used for unknown indication
     Dosage: UNK
     Route: 065
     Dates: end: 202209
  4. PREDNISONE [Suspect]
     Active Substance: PREDNISONE
     Dosage: UNK (DECREASED DOSE)
     Route: 065
     Dates: start: 202209

REACTIONS (8)
  - Skin ulcer haemorrhage [Unknown]
  - Contusion [Unknown]
  - Skin ulcer [Unknown]
  - Skin exfoliation [Unknown]
  - Skin wound [Unknown]
  - Oxygen consumption increased [Unknown]
  - Cough [Unknown]
  - Rash macular [Unknown]

NARRATIVE: CASE EVENT DATE: 20210101
